FAERS Safety Report 23701260 (Version 1)
Quarter: 2024Q2

REPORT INFORMATION
  Report Type: Other
  Country: IT (occurrence: IT)
  Receive Date: 20240403
  Receipt Date: 20240403
  Transmission Date: 20240716
  Serious: Yes (Other)
  Sender: FDA-Public Use
  Company Number: None

PATIENT
  Age: 89 Year
  Sex: Male

DRUGS (1)
  1. XTANDI [Suspect]
     Active Substance: ENZALUTAMIDE
     Indication: Prostate cancer
     Dosage: 160 MG, (4 UNITS OF 40 MG) ONCE DAILY
     Route: 048
     Dates: start: 20240314

REACTIONS (4)
  - Azotaemia [Not Recovered/Not Resolved]
  - Confusional state [Not Recovered/Not Resolved]
  - Head discomfort [Not Recovered/Not Resolved]
  - Blood creatinine increased [Not Recovered/Not Resolved]

NARRATIVE: CASE EVENT DATE: 20240307
